FAERS Safety Report 17499851 (Version 1)
Quarter: 2020Q1

REPORT INFORMATION
  Report Type: Report from Study
  Country: FR (occurrence: FR)
  Receive Date: 20200304
  Receipt Date: 20200304
  Transmission Date: 20200409
  Serious: Yes (Hospitalization, Other)
  Sender: FDA-Public Use
  Company Number: FR-BRISTOL-MYERS SQUIBB COMPANY-BMS-2020-015292

PATIENT
  Age: 79 Year
  Sex: Male
  Weight: 79.5 kg

DRUGS (1)
  1. APIXABAN [Suspect]
     Active Substance: APIXABAN
     Indication: EMBOLISM VENOUS
     Dosage: 2.5MG OR 5MG TWICE DAILY ACCORDING TO THE RANDAMIZATION GROUP
     Route: 065
     Dates: start: 20200106

REACTIONS (1)
  - Metastases to kidney [Unknown]

NARRATIVE: CASE EVENT DATE: 20200210
